FAERS Safety Report 4659349-X (Version None)
Quarter: 2005Q2

REPORT INFORMATION
  Report Type: 
  Country: None (occurrence: None)
  Receive Date: 20050502
  Receipt Date: 20040112
  Transmission Date: 20051028
  Serious: No
  Sender: FDA-Public Use
  Company Number: 200419320US

PATIENT
  Age: 51 Year
  Sex: Female
  Weight: 70 kg

DRUGS (5)
  1. KETEK [Suspect]
     Indication: SINUSITIS
     Dosage: 800 MG QD PO
     Route: 048
     Dates: start: 20041113, end: 20041115
  2. BUPROPION HYDROCHLORIDE (WELLBUTRIN) [Concomitant]
  3. DEXBROMPHENIRAMINE MALEATE [Concomitant]
  4. PSEUDOEPHEDRINE SULFATE (DRIXORAL) [Concomitant]
  5. SYNTHROID [Concomitant]

REACTIONS (5)
  - ANGIONEUROTIC OEDEMA [None]
  - HYPERSENSITIVITY [None]
  - SKIN LESION [None]
  - SWELLING FACE [None]
  - URTICARIA [None]
